FAERS Safety Report 9717434 (Version 1)
Quarter: 2013Q4

REPORT INFORMATION
  Report Type: Spontaneous
  Country: US (occurrence: US)
  Receive Date: 20131127
  Receipt Date: 20131127
  Transmission Date: 20140711
  Serious: No
  Sender: FDA-Public Use
  Company Number: US-GILEAD-2008-0019667

PATIENT
  Sex: Female
  Weight: 86.18 kg

DRUGS (10)
  1. LETAIRIS [Suspect]
     Indication: PULMONARY ARTERIAL HYPERTENSION
     Route: 048
     Dates: start: 20081117
  2. LASIX [Concomitant]
  3. REGLAN [Concomitant]
  4. TYLENOL [Concomitant]
  5. TYLENOL W/CODEINE [Concomitant]
  6. ALBUTEROL [Concomitant]
  7. NASONEX [Concomitant]
  8. POTASSIUM CHLORIDE [Concomitant]
  9. CALCIUM [Concomitant]
  10. MULTIVITAMIN [Concomitant]

REACTIONS (2)
  - Palpitations [Unknown]
  - Dizziness [Unknown]
